FAERS Safety Report 20495958 (Version 2)
Quarter: 2022Q1

REPORT INFORMATION
  Report Type: Spontaneous
  Country: JP (occurrence: JP)
  Receive Date: 20220221
  Receipt Date: 20220308
  Transmission Date: 20220423
  Serious: Yes (Other)
  Sender: FDA-Public Use
  Company Number: JP-GSKNCCC-Case-01422500_AE-54851

PATIENT
  Age: 84 Year
  Sex: Female

DRUGS (1)
  1. SOTROVIMAB [Suspect]
     Active Substance: SOTROVIMAB
     Indication: COVID-19
     Dosage: 500 MG/50ML/30MIN
     Dates: start: 20220210, end: 20220210

REACTIONS (6)
  - Pneumonia [Unknown]
  - Respiration abnormal [Recovered/Resolved]
  - Pruritus [Recovering/Resolving]
  - Hypersensitivity [Unknown]
  - Respiratory disorder [Unknown]
  - Oxygen therapy [Unknown]

NARRATIVE: CASE EVENT DATE: 20220210
